FAERS Safety Report 8998646 (Version 2)
Quarter: 2013Q1

REPORT INFORMATION
  Report Type: Spontaneous
  Country: US (occurrence: US)
  Receive Date: 20130103
  Receipt Date: 20130129
  Transmission Date: 20140127
  Serious: No
  Sender: FDA-Public Use
  Company Number: US-009507513-1212USA010031

PATIENT
  Age: 65 Year
  Sex: Female

DRUGS (2)
  1. NASONEX [Suspect]
     Dosage: INHALE ONE SPRAY IN EACH NOSTRIL, PRN
     Route: 045
     Dates: start: 200912
  2. LIPITOR [Concomitant]

REACTIONS (3)
  - Headache [Not Recovered/Not Resolved]
  - Drug dose omission [Unknown]
  - Product quality issue [Unknown]
